FAERS Safety Report 4785582-2 (Version None)
Quarter: 2005Q4

REPORT INFORMATION
  Report Type: 
  Country: None (occurrence: None)
  Receive Date: 20051003
  Receipt Date: 20040913
  Transmission Date: 20060501
  Serious: Yes (Hospitalization)
  Sender: FDA-Public Use
  Company Number: JP-GLAXOSMITHKLINE-B0393227A

PATIENT
  Age: 66 Year
  Sex: Male

DRUGS (6)
  1. ZEFIX [Suspect]
     Indication: HEPATIC CIRRHOSIS
     Dosage: 100MG PER DAY
     Route: 048
     Dates: start: 20030806
  2. NORVASC [Concomitant]
     Indication: HYPERTENSION
     Dosage: 1 PER DAY
     Route: 048
  3. AMARYL [Concomitant]
     Indication: DIABETES MELLITUS
     Dosage: 1 PER DAY
     Route: 048
  4. ASPIRIN [Concomitant]
     Indication: CAROTID ARTERY STENOSIS
     Dosage: 100MG PER DAY
     Route: 048
     Dates: start: 20021028
  5. BASEN [Concomitant]
     Indication: DIABETES MELLITUS
     Dosage: 3 PER DAY
     Route: 048
     Dates: start: 20030317
  6. CRAVIT [Concomitant]
     Indication: PROSTATITIS
     Dosage: 100MG THREE TIMES PER DAY
     Route: 048
     Dates: start: 20050901, end: 20050907

REACTIONS (1)
  - HEPATITIS B [None]
